FAERS Safety Report 4535966-2 (Version None)
Quarter: 2004Q4

REPORT INFORMATION
  Report Type: 
  Country: None (occurrence: None)
  Receive Date: 20041222
  Receipt Date: 20041222
  Transmission Date: 20050328
  Serious: Yes (Other)
  Sender: FDA-Public Use
  Company Number: None

PATIENT
  Sex: Male
  Weight: 66.6788 kg

DRUGS (6)
  1. ISONIAZID [Suspect]
     Indication: TUBERCULOSIS
     Dosage: 2 TABS BI-WEEKLY
     Dates: start: 20040830, end: 20041206
  2. RIFAMATE [Suspect]
     Indication: TUBERCULOSIS
     Dosage: 2 TABS BI-WEEKLY
     Dates: start: 20040830, end: 20041206
  3. GLICAZIDE [Concomitant]
  4. ASPIRIN [Concomitant]
  5. METOPROLOL TARTRATE [Concomitant]
  6. DIGOXIN [Concomitant]

REACTIONS (3)
  - DRY SKIN [None]
  - EOSINOPHILIA [None]
  - RASH ERYTHEMATOUS [None]
